FAERS Safety Report 6550537-4 (Version None)
Quarter: 2010Q1

REPORT INFORMATION
  Report Type: 
  Country: None (occurrence: None)
  Receive Date: 20100125
  Receipt Date: 20100119
  Transmission Date: 20100710
  Serious: Yes (Hospitalization)
  Sender: FDA-Public Use
  Company Number: B0628495A

PATIENT
  Sex: Female

DRUGS (1)
  1. ARIXTRA [Suspect]
     Indication: SURGERY
     Dosage: 1UNIT PER DAY
     Route: 058
     Dates: start: 20090104, end: 20090113

REACTIONS (2)
  - EPISTAXIS [None]
  - METRORRHAGIA [None]
